FAERS Safety Report 6046215-0 (Version None)
Quarter: 2009Q1

REPORT INFORMATION
  Report Type: 
  Country: None (occurrence: None)
  Receive Date: 20090122
  Receipt Date: 20090108
  Transmission Date: 20090719
  Serious: Yes (Other)
  Sender: FDA-Public Use
  Company Number: US-PFIZER INC-2008072050

PATIENT
  Sex: Female
  Weight: 92.971 kg

DRUGS (4)
  1. CHANTIX [Suspect]
     Indication: SMOKING CESSATION THERAPY
     Dosage: UNK
     Dates: start: 20070205
  2. ALL OTHER THERAPEUTIC PRODUCTS [Concomitant]
  3. IRON [Concomitant]
  4. NICOTINE [Concomitant]

REACTIONS (3)
  - ARTHRITIS [None]
  - COLITIS ULCERATIVE [None]
  - DYSPNOEA [None]
